FAERS Safety Report 7444223-6 (Version None)
Quarter: 2011Q2

REPORT INFORMATION
  Report Type: 
  Country: None (occurrence: None)
  Receive Date: 20110429
  Receipt Date: 20101102
  Transmission Date: 20111010
  Serious: Yes (Hospitalization)
  Sender: FDA-Public Use
  Company Number: US-BAYER-201031340NA

PATIENT
  Age: 23 Year
  Sex: Female
  Weight: 57 kg

DRUGS (7)
  1. NSAID'S [Concomitant]
     Dosage: UNK
     Dates: start: 20000101
  2. PROPOX-N [Concomitant]
     Dosage: UNK
     Route: 048
     Dates: start: 20071031
  3. IBUPROFEN [Concomitant]
     Dosage: 600 MG, UNK
     Route: 048
  4. YAZ [Suspect]
     Indication: CONTRACEPTION
     Route: 065
     Dates: start: 20060701, end: 20080808
  5. APAP TAB [Concomitant]
     Dosage: UNK
     Route: 048
     Dates: start: 20080305
  6. IBUPROFEN (ADVIL) [Concomitant]
     Dosage: UNK
     Dates: start: 20080701, end: 20080801
  7. INDOMETHACIN [Concomitant]
     Dosage: 50 MG, UNK
     Route: 048
     Dates: start: 20080624, end: 20080724

REACTIONS (1)
  - PULMONARY EMBOLISM [None]
